FAERS Safety Report 14825131 (Version 1)
Quarter: 2018Q2

REPORT INFORMATION
  Report Type: Report from Study
  Country: FR (occurrence: FR)
  Receive Date: 20180430
  Receipt Date: 20180430
  Transmission Date: 20180711
  Serious: Yes (Death)
  Sender: FDA-Public Use
  Company Number: FR-BEH-2018090152

PATIENT
  Age: 19 Year
  Sex: Male

DRUGS (1)
  1. HUMAN IMMUNOGLOBULIN IV (GENERIC) [Suspect]
     Active Substance: HUMAN IMMUNOGLOBULIN G
     Indication: STILL^S DISEASE
     Route: 042

REACTIONS (1)
  - Drug ineffective for unapproved indication [Fatal]
